FAERS Safety Report 6698255-6 (Version None)
Quarter: 2010Q2

REPORT INFORMATION
  Report Type: 
  Country: None (occurrence: None)
  Receive Date: 20100427
  Receipt Date: 20100416
  Transmission Date: 20101027
  Serious: Yes (Other)
  Sender: FDA-Public Use
  Company Number: DE-BAXTER-2010BH002448

PATIENT
  Age: 51 Year
  Sex: Male

DRUGS (2)
  1. GAMMAGARD LIQUID [Suspect]
     Indication: CHRONIC INFLAMMATORY DEMYELINATING POLYRADICULONEUROPATHY
     Route: 042
     Dates: start: 20091217, end: 20091218
  2. GAMMAGARD LIQUID [Suspect]
     Indication: OFF LABEL USE
     Route: 042
     Dates: start: 20091217, end: 20091218

REACTIONS (4)
  - CHROMATURIA [None]
  - INTRAVASCULAR HAEMOLYSIS [None]
  - LABORATORY TEST ABNORMAL [None]
  - LIVEDO RETICULARIS [None]
